FAERS Safety Report 15974299 (Version 1)
Quarter: 2019Q1

REPORT INFORMATION
  Report Type: Spontaneous
  Country: JP (occurrence: JP)
  Receive Date: 20190218
  Receipt Date: 20190218
  Transmission Date: 20190418
  Serious: Yes (Other)
  Sender: FDA-Public Use
  Company Number: JP-SUN PHARMACEUTICAL INDUSTRIES LTD-2019R1-199472

PATIENT

DRUGS (3)
  1. ASVERIN (TIPEPIDINE HIBENZATE) [Suspect]
     Active Substance: TIPEPIDINE HIBENZATE
     Indication: NASOPHARYNGITIS
     Dosage: 20 MILLIGRAM, TID
     Route: 048
  2. LEVOFLOXACIN. [Suspect]
     Active Substance: LEVOFLOXACIN
     Indication: NASOPHARYNGITIS
     Dosage: 500 MILLIGRAM, QD
     Route: 048
  3. FEXOFENADINE [Suspect]
     Active Substance: FEXOFENADINE\FEXOFENADINE HYDROCHLORIDE
     Indication: NASOPHARYNGITIS
     Dosage: 60 MILLIGRAM, BID
     Route: 048

REACTIONS (1)
  - Rhabdomyolysis [Recovered/Resolved]
